FAERS Safety Report 24784644 (Version 4)
Quarter: 2025Q2

REPORT INFORMATION
  Report Type: Report from Study
  Country: US (occurrence: US)
  Receive Date: 20241227
  Receipt Date: 20250414
  Transmission Date: 20250717
  Serious: Yes (Disabling)
  Sender: GILEAD
  Company Number: US-GILEAD-2024-0698083

PATIENT
  Age: 72 Year
  Sex: Female

DRUGS (2)
  1. SELADELPAR [Suspect]
     Active Substance: SELADELPAR
     Indication: Primary biliary cholangitis
     Dosage: 10 MG, QD
     Route: 048
     Dates: start: 20241204
  2. SELADELPAR [Suspect]
     Active Substance: SELADELPAR
     Dosage: 1 DOSAGE FORM, QD
     Route: 048

REACTIONS (8)
  - Weight increased [Unknown]
  - Alopecia [Not Recovered/Not Resolved]
  - Headache [Recovered/Resolved]
  - Injection site bruising [Not Recovered/Not Resolved]
  - Blood glucose increased [Not Recovered/Not Resolved]
  - Blood urine present [Not Recovered/Not Resolved]
  - Alopecia [Not Recovered/Not Resolved]
  - Sunburn [Not Recovered/Not Resolved]
